FAERS Safety Report 12629610 (Version 1)
Quarter: 2016Q3

REPORT INFORMATION
  Report Type: Spontaneous
  Country: CO (occurrence: CO)
  Receive Date: 20160808
  Receipt Date: 20160808
  Transmission Date: 20161109
  Serious: Yes (Other)
  Sender: FDA-Public Use
  Company Number: CO-PFIZER INC-2016374182

PATIENT
  Age: 14 Year
  Sex: Male

DRUGS (1)
  1. PHENYTOIN. [Suspect]
     Active Substance: PHENYTOIN
     Indication: PARTIAL SEIZURES
     Dosage: UNK

REACTIONS (4)
  - Condition aggravated [Unknown]
  - Developmental delay [Unknown]
  - Gingival hypertrophy [Unknown]
  - Epilepsy [Unknown]
